FAERS Safety Report 23092391 (Version 1)
Quarter: 2023Q4

REPORT INFORMATION
  Report Type: Spontaneous
  Country: MX (occurrence: None)
  Receive Date: 20231021
  Receipt Date: 20231021
  Transmission Date: 20240110
  Serious: Yes (Other)
  Sender: FDA-Public Use
  Company Number: MX-ROCHE-3441304

PATIENT
  Sex: Male
  Weight: 85 kg

DRUGS (1)
  1. POLIVY [Suspect]
     Active Substance: POLATUZUMAB VEDOTIN-PIIQ
     Indication: Non-Hodgkin^s lymphoma
     Route: 065
     Dates: start: 202309

REACTIONS (2)
  - Non-Hodgkin^s lymphoma refractory [Unknown]
  - Drug ineffective [Unknown]
